FAERS Safety Report 4669502-7 (Version None)
Quarter: 2005Q2

REPORT INFORMATION
  Report Type: 
  Country: None (occurrence: None)
  Receive Date: 20050523
  Receipt Date: 20050309
  Transmission Date: 20051028
  Serious: Yes (Hospitalization)
  Sender: FDA-Public Use
  Company Number: US-ROCHE-397839

PATIENT
  Age: 43 Year
  Sex: Female
  Weight: 92.5 kg

DRUGS (6)
  1. PEG-INTERFERON ALFA 2A (RO 25-8310) [Suspect]
     Route: 058
     Dates: start: 20050117, end: 20050308
  2. RIBAVIRIN [Suspect]
     Route: 048
     Dates: start: 20050117, end: 20050308
  3. EFFEXOR XR [Concomitant]
     Dates: start: 20040216
  4. ATARAX [Concomitant]
     Dates: start: 20050124
  5. RESTORIL [Concomitant]
     Dates: start: 20050119
  6. MECLIZINE [Concomitant]
     Dates: start: 20020802

REACTIONS (3)
  - CYST [None]
  - INFLUENZA LIKE ILLNESS [None]
  - STAPHYLOCOCCAL INFECTION [None]
